FAERS Safety Report 9383018 (Version 1)
Quarter: 2013Q3

REPORT INFORMATION
  Report Type: Spontaneous
  Country: CH (occurrence: CH)
  Receive Date: 20130704
  Receipt Date: 20130704
  Transmission Date: 20140515
  Serious: Yes (Disabling)
  Sender: FDA-Public Use
  Company Number: CH-009507513-1306CHE002532

PATIENT
  Age: 76 Year
  Sex: Female
  Weight: 50 kg

DRUGS (1)
  1. SAFLUTAN [Suspect]
     Indication: GLAUCOMA
     Dosage: 1 DROP DAILY
     Route: 047
     Dates: start: 20121128, end: 20130604

REACTIONS (1)
  - Iris hypopigmentation [Not Recovered/Not Resolved]
